FAERS Safety Report 9671025 (Version 1)
Quarter: 2013Q4

REPORT INFORMATION
  Report Type: Spontaneous
  Country: US (occurrence: US)
  Receive Date: 20131106
  Receipt Date: 20131106
  Transmission Date: 20140711
  Serious: Yes (Hospitalization)
  Sender: FDA-Public Use
  Company Number: US-ABBVIE-13P-163-1165122-00

PATIENT
  Age: 74 Year
  Sex: Female
  Weight: 121.67 kg

DRUGS (11)
  1. SYNTHROID [Suspect]
     Indication: HYPOTHYROIDISM
     Dates: start: 201302
  2. SYNTHROID [Suspect]
     Indication: PRODUCT USED FOR UNKNOWN INDICATION
     Dosage: VARIED DOSES, STARTING FROM LOWEST AND INCREASING UP, TIME FRAMES + DOSES WERE UNKNOWN.
     Dates: start: 1970, end: 201302
  3. PRADAXA [Suspect]
     Indication: TRANSIENT ISCHAEMIC ATTACK
     Dates: start: 201303, end: 201308
  4. ELIQUIS [Suspect]
     Indication: TRANSIENT ISCHAEMIC ATTACK
     Dosage: TOOK 2 DOSES
     Route: 048
     Dates: start: 201309, end: 201309
  5. FLACONIDE [Concomitant]
     Indication: TRANSIENT ISCHAEMIC ATTACK
     Dates: start: 2013
  6. METFORMIN [Concomitant]
     Indication: PRODUCT USED FOR UNKNOWN INDICATION
  7. HYDROCHLOROTHIAZIDE [Concomitant]
     Indication: PRODUCT USED FOR UNKNOWN INDICATION
  8. CLONIDINE [Concomitant]
     Indication: PRODUCT USED FOR UNKNOWN INDICATION
  9. VITAMIN E [Concomitant]
     Indication: PRODUCT USED FOR UNKNOWN INDICATION
  10. OMEGA 3 WITH FLAXSEED OIL [Concomitant]
     Indication: PRODUCT USED FOR UNKNOWN INDICATION
  11. BENADRYL [Concomitant]
     Indication: VULVOVAGINAL PRURITUS
     Dates: start: 201303

REACTIONS (8)
  - Transient ischaemic attack [Recovered/Resolved]
  - Dysarthria [Recovered/Resolved]
  - Vulvovaginal pain [Not Recovered/Not Resolved]
  - Vulvovaginal pruritus [Not Recovered/Not Resolved]
  - Respiratory disorder [Recovered/Resolved]
  - Hypoaesthesia oral [Recovered/Resolved]
  - Hypoaesthesia oral [Recovered/Resolved]
  - Gastric disorder [Not Recovered/Not Resolved]
